FAERS Safety Report 8607323 (Version 2)
Quarter: 2012Q4

REPORT INFORMATION
  Report Type: Report from Study
  Country: JP (occurrence: JP)
  Receive Date: 20120611
  Receipt Date: 20121007
  Transmission Date: 20130627
  Serious: Yes (Hospitalization)
  Sender: FDA-Public Use
  Company Number: JP-US-EMD SERONO, INC.-7135371

PATIENT
  Age: 0 Year
  Sex: Female
  Weight: 2 kg

DRUGS (2)
  1. GONAL-F [Suspect]
     Indication: OVULATION INDUCTION
     Route: 064
     Dates: start: 20100217, end: 20100301
  2. GONAL-F [Suspect]
     Indication: POLYCYSTIC OVARIES
     Route: 064
     Dates: start: 20100302, end: 20100308

REACTIONS (2)
  - Premature baby [Recovered/Resolved]
  - Low birth weight baby [Unknown]
